FAERS Safety Report 16532156 (Version 2)
Quarter: 2019Q3

REPORT INFORMATION
  Report Type: Spontaneous
  Country: JP (occurrence: JP)
  Receive Date: 20190705
  Receipt Date: 20190716
  Transmission Date: 20191004
  Serious: Yes (Death, Life-Threatening, Hospitalization, Other)
  Sender: FDA-Public Use
  Company Number: JP-009507513-1905JPN001896J

PATIENT
  Age: 75 Year
  Sex: Female
  Weight: 46 kg

DRUGS (6)
  1. CARBOPLATIN. [Suspect]
     Active Substance: CARBOPLATIN
     Indication: NON-SMALL CELL LUNG CANCER
     Dosage: UNK
     Route: 041
     Dates: start: 20190513, end: 20190513
  2. PAREPLUS [Concomitant]
     Active Substance: AMINO ACIDS\DEXTROSE\ELECTROLYTES NOS\VITAMINS
     Indication: FLUID REPLACEMENT
     Dosage: 1000 MILLILITER, QD
     Route: 041
     Dates: start: 20190511, end: 20190516
  3. DEXART [Concomitant]
     Active Substance: DEXAMETHASONE SODIUM PHOSPHATE
     Indication: LYMPHANGIOSIS CARCINOMATOSA
     Dosage: 8 MILLIGRAM, QD
     Route: 042
     Dates: start: 20190511, end: 20190512
  4. PEMETREXED DISODIUM [Suspect]
     Active Substance: PEMETREXED DISODIUM
     Indication: NON-SMALL CELL LUNG CANCER
     Dosage: UNK
     Route: 041
     Dates: start: 20190513, end: 20190513
  5. KEYTRUDA [Suspect]
     Active Substance: PEMBROLIZUMAB
     Indication: NON-SMALL CELL LUNG CANCER
     Dosage: 200 MILLIGRAM, Q3W
     Route: 041
     Dates: start: 20190513, end: 20190513
  6. INFLIXIMAB [Suspect]
     Active Substance: INFLIXIMAB
     Indication: LUNG DISORDER
     Dosage: 200 MILLIGRAM, UNKNOWN
     Route: 041
     Dates: start: 20190520, end: 20190520

REACTIONS (7)
  - Sepsis [Fatal]
  - Disseminated intravascular coagulation [Not Recovered/Not Resolved]
  - Septic shock [Fatal]
  - Respiratory failure [Fatal]
  - Device related infection [Fatal]
  - Acute kidney injury [Fatal]
  - Interstitial lung disease [Not Recovered/Not Resolved]

NARRATIVE: CASE EVENT DATE: 20190516
